FAERS Safety Report 6899320-0 (Version None)
Quarter: 2010Q3

REPORT INFORMATION
  Report Type: 
  Country: None (occurrence: None)
  Receive Date: 20100802
  Receipt Date: 20100727
  Transmission Date: 20110219
  Serious: Yes (Hospitalization, Other)
  Sender: FDA-Public Use
  Company Number: FR-BRISTOL-MYERS SQUIBB COMPANY-15214406

PATIENT
  Age: 76 Year
  Sex: Female

DRUGS (9)
  1. APROVEL [Suspect]
     Indication: HYPERTENSION
     Route: 048
  2. ARAVA [Interacting]
     Indication: RHEUMATOID ARTHRITIS
     Route: 048
     Dates: start: 20090911, end: 20100311
  3. CELECTOL [Concomitant]
  4. CITALOPRAM HYDROBROMIDE [Concomitant]
  5. HYDROCHLOROTHIAZIDE [Concomitant]
  6. ZANIDIP [Concomitant]
  7. TRANXENE [Concomitant]
  8. TRAMADOL HYDROCHLORIDE [Concomitant]
  9. DOLIPRANE [Concomitant]

REACTIONS (3)
  - ANAEMIA MACROCYTIC [None]
  - DRUG INTERACTION [None]
  - NEUTROPENIA [None]
